FAERS Safety Report 12601136 (Version 2)
Quarter: 2016Q4

REPORT INFORMATION
  Report Type: Spontaneous
  Country: HU (occurrence: HU)
  Receive Date: 20160728
  Receipt Date: 20161005
  Transmission Date: 20170207
  Serious: Yes (Death)
  Sender: FDA-Public Use
  Company Number: HU-ROCHE-1802351

PATIENT
  Age: 78 Year
  Sex: Female
  Weight: 50 kg

DRUGS (8)
  1. TRENTAL [Concomitant]
     Active Substance: PENTOXIFYLLINE
  2. NOOTROPIL [Concomitant]
     Active Substance: PIRACETAM
  3. ROACTEMRA [Suspect]
     Active Substance: TOCILIZUMAB
     Indication: RHEUMATOID ARTHRITIS
     Route: 042
     Dates: start: 20100712, end: 20160723
  4. SIMVOR [Concomitant]
     Active Substance: SIMVASTATIN
  5. ASPIRIN PROTECT [Concomitant]
     Active Substance: ASPIRIN
  6. METYPRED [Concomitant]
     Active Substance: METHYLPREDNISOLONE
     Route: 065
  7. NOACID (HUNGARY) [Concomitant]
     Route: 065
  8. RENITEC [Concomitant]
     Active Substance: ENALAPRIL MALEATE

REACTIONS (2)
  - Myocardial infarction [Fatal]
  - Brain oedema [Fatal]

NARRATIVE: CASE EVENT DATE: 20160723
